FAERS Safety Report 7360579-7 (Version None)
Quarter: 2011Q1

REPORT INFORMATION
  Report Type: 
  Country: None (occurrence: None)
  Receive Date: 20110309
  Receipt Date: 20110221
  Transmission Date: 20110831
  Serious: Yes (Death, Other)
  Sender: FDA-Public Use
  Company Number: DSM-2010-00538

PATIENT
  Age: 2 Day
  Sex: Female
  Weight: 1.1 kg

DRUGS (1)
  1. OMETEC (OLMESARTAN MEDOXOMIL) (20 MILLIGRAM, TABLET) (OLMESARTAN MEDOX [Suspect]
     Indication: MATERNAL HYPERTENSION AFFECTING FOETUS
     Dosage: 1 IN 1 D, TRANSPLACENTAL
     Route: 064
     Dates: start: 20050101

REACTIONS (12)
  - RENAL HYPERTROPHY [None]
  - KIDNEY MALFORMATION [None]
  - APGAR SCORE ABNORMAL [None]
  - SKULL MALFORMATION [None]
  - PREMATURE BABY [None]
  - PULMONARY HYPOPLASIA [None]
  - PERSISTENT FOETAL CIRCULATION [None]
  - OLIGOHYDRAMNIOS [None]
  - ANURIA [None]
  - DRUG EXPOSURE DURING PREGNANCY [None]
  - CAESAREAN SECTION [None]
  - LIMB MALFORMATION [None]
